FAERS Safety Report 25620206 (Version 1)
Quarter: 2025Q3

REPORT INFORMATION
  Report Type: Spontaneous
  Country: US (occurrence: US)
  Receive Date: 20250730
  Receipt Date: 20250730
  Transmission Date: 20251021
  Serious: No
  Sender: AZURITY PHARMACEUTICALS
  Company Number: US-AZURITY PHARMACEUTICALS, INC.-AZR202409-000656

PATIENT
  Sex: Male

DRUGS (2)
  1. TRIPTODUR [Suspect]
     Active Substance: TRIPTORELIN
     Indication: Product used for unknown indication
     Route: 065
  2. TRIPTODUR [Suspect]
     Active Substance: TRIPTORELIN
     Route: 030

REACTIONS (1)
  - Emotional disorder [Unknown]
